FAERS Safety Report 5968283-4 (Version None)
Quarter: 2008Q4

REPORT INFORMATION
  Report Type: 
  Country: None (occurrence: None)
  Receive Date: 20081121
  Receipt Date: 20081121
  Transmission Date: 20090506
  Serious: Yes (Death, Life-Threatening, Hospitalization)
  Sender: FDA-Public Use
  Company Number: None

PATIENT
  Age: 37 Year
  Sex: Female
  Weight: 57 kg

DRUGS (1)
  1. TIGECYCLINE 50 MILLIGRAMS WYETH [Suspect]
     Indication: ABDOMINAL ABSCESS
     Dosage: 50 MG TWICE DAILY IV
     Route: 042
     Dates: start: 20080828, end: 20080904

REACTIONS (7)
  - ABDOMINAL DISTENSION [None]
  - ABDOMINAL PAIN [None]
  - BLOOD BILIRUBIN INCREASED [None]
  - CONDITION AGGRAVATED [None]
  - HEART RATE DECREASED [None]
  - HEPATIC ENZYME INCREASED [None]
  - SEPSIS [None]
